FAERS Safety Report 21139965 (Version 1)
Quarter: 2022Q3

REPORT INFORMATION
  Report Type: Spontaneous
  Country: FR (occurrence: FR)
  Receive Date: 20220728
  Receipt Date: 20220728
  Transmission Date: 20221027
  Serious: Yes (Life-Threatening)
  Sender: FDA-Public Use
  Company Number: None

PATIENT
  Age: 79 Year
  Sex: Female
  Weight: 97 kg

DRUGS (9)
  1. KETOPROFEN [Interacting]
     Active Substance: KETOPROFEN
     Indication: Back pain
     Dosage: 1 DF, FREQUENCY TIME: 1 AS REQUIRED, THERAPY START DATE AND END DATE: ASKU
     Route: 065
  2. ACECLOFENAC [Interacting]
     Active Substance: ACECLOFENAC
     Indication: Back pain
     Dosage: 200 MG, FREQUENCY TIME: 1 AS REQUIRED, THERAPY START DATE AND END DATE: ASKU
     Route: 065
  3. GLIMEPIRIDE [Concomitant]
     Active Substance: GLIMEPIRIDE
     Indication: Product used for unknown indication
     Dosage: THERAPY START DATE AND END DATE: ASKU
  4. METFORMIN HYDROCHLORIDE [Concomitant]
     Active Substance: METFORMIN HYDROCHLORIDE
     Indication: Product used for unknown indication
     Dosage: 3 GRAM, FREQUENCY TIME-1 DAY, THERAPY START DATE AND END DATE: ASKU
  5. JANUVIA [Concomitant]
     Active Substance: SITAGLIPTIN PHOSPHATE
     Indication: Product used for unknown indication
     Dosage: FORM STRENGTH: 50 MG, UNIT DOSE: 100 MG, FREQUENCY TIME-1 DAY, THERAPY START DATE AND END DATE: ASKU
  6. ACETAMINOPHEN [Concomitant]
     Active Substance: ACETAMINOPHEN
     Indication: Product used for unknown indication
     Dosage: 1 DF, FREQUENCY TIME: 1 AS REQUIRED, THERAPY START DATE: ASKU
  7. NEBIVOLOL [Concomitant]
     Active Substance: NEBIVOLOL
     Indication: Product used for unknown indication
     Dosage: 1.25 MG, FREQUENCY TIME-1 DAY, THERAPY START DATE AND END DATE: ASKU
  8. DESLORATADINE [Concomitant]
     Active Substance: DESLORATADINE
     Indication: Product used for unknown indication
     Dosage: 1 DF, FREQUENCY TIME-1 DAY, THERAPY START DATE AND END DATE: ASKU
  9. ATORVASTATIN [Concomitant]
     Active Substance: ATORVASTATIN
     Indication: Product used for unknown indication
     Dosage: 10 MG, FREQUENCY TIME-1 DAY, THERAPY START DATE AND END DATE: ASKU

REACTIONS (3)
  - Duodenal ulcer perforation [Recovering/Resolving]
  - Shock haemorrhagic [Recovered/Resolved]
  - Drug interaction [Recovered/Resolved]

NARRATIVE: CASE EVENT DATE: 20220614
